FAERS Safety Report 5882915-0 (Version None)
Quarter: 2008Q3

REPORT INFORMATION
  Report Type: 
  Country: None (occurrence: None)
  Receive Date: 20080913
  Receipt Date: 20080820
  Transmission Date: 20090109
  Serious: Yes (Other)
  Sender: FDA-Public Use
  Company Number: US-ABBOTT-08P-163-0471987-00

PATIENT
  Sex: Female
  Weight: 95.34 kg

DRUGS (5)
  1. HUMIRA [Suspect]
     Indication: RHEUMATOID ARTHRITIS
     Route: 050
     Dates: start: 20080720
  2. HUMIRA [Suspect]
     Indication: ANKYLOSING SPONDYLITIS
  3. CELECOXIB [Concomitant]
     Indication: PAIN
     Dosage: 1-2 (TOTAL DAILY DOSE) 1-2 TABLETS (UNIT DOSE
     Route: 048
  4. GLUCOSAMINE [Concomitant]
     Indication: BONE DISORDER
     Route: 048
  5. GLUCOSAMINE [Concomitant]
     Indication: ARTHROPATHY

REACTIONS (3)
  - C-REACTIVE PROTEIN INCREASED [None]
  - NASOPHARYNGITIS [None]
  - PNEUMONIA [None]
